FAERS Safety Report 4832640-X (Version None)
Quarter: 2005Q4

REPORT INFORMATION
  Report Type: 
  Country: None (occurrence: None)
  Receive Date: 20051117
  Receipt Date: 20051109
  Transmission Date: 20060501
  Serious: Yes (Hospitalization)
  Sender: FDA-Public Use
  Company Number: TPA2005A01317

PATIENT
  Age: 70 Year
  Sex: Male
  Weight: 81.1939 kg

DRUGS (5)
  1. PIOGLITAZONE HCL [Suspect]
     Indication: GLUCOSE TOLERANCE IMPAIRED
     Dosage: 1 IN 1 D, PER ORAL
     Route: 048
     Dates: start: 20040702
  2. COLESTIPOL (COLESTIPOL) [Concomitant]
  3. ASPIRIN [Concomitant]
  4. MULTIVITAMIN [Concomitant]
  5. IBUPROFEN [Concomitant]

REACTIONS (5)
  - ACUTE MYOCARDIAL INFARCTION [None]
  - CARDIAC FAILURE CONGESTIVE [None]
  - COUGH [None]
  - FIBRIN D DIMER INCREASED [None]
  - MITRAL VALVE INCOMPETENCE [None]
